FAERS Safety Report 25052313 (Version 1)
Quarter: 2025Q1

REPORT INFORMATION
  Report Type: Spontaneous
  Country: JP (occurrence: JP)
  Receive Date: 20250307
  Receipt Date: 20250307
  Transmission Date: 20250409
  Serious: Yes (Hospitalization, Other)
  Sender: PFIZER
  Company Number: JP-PFIZER INC-PV202500026496

PATIENT
  Age: 8 Year
  Sex: Male
  Weight: 17 kg

DRUGS (5)
  1. METHOTREXATE SODIUM [Suspect]
     Active Substance: METHOTREXATE SODIUM
     Route: 037
     Dates: start: 20240118, end: 20250116
  2. PREDNISOLONE SODIUM SUCCINATE [Suspect]
     Active Substance: PREDNISOLONE SODIUM SUCCINATE
  3. CYTARABINE [Concomitant]
     Active Substance: CYTARABINE
  4. ONDANSETRON [Concomitant]
     Active Substance: ONDANSETRON
  5. SULFAMETHOXAZOLE\TRIMETHOPRIM [Concomitant]
     Active Substance: SULFAMETHOXAZOLE\TRIMETHOPRIM

REACTIONS (6)
  - Toxic leukoencephalopathy [Not Recovered/Not Resolved]
  - Altered state of consciousness [Unknown]
  - Dizziness [Unknown]
  - Somnolence [Unknown]
  - Gait disturbance [Unknown]
  - Tremor [Unknown]

NARRATIVE: CASE EVENT DATE: 20250201
